FAERS Safety Report 6397252-8 (Version None)
Quarter: 2009Q4

REPORT INFORMATION
  Report Type: 
  Country: None (occurrence: None)
  Receive Date: 20091012
  Receipt Date: 20090930
  Transmission Date: 20100525
  Serious: Yes (Hospitalization)
  Sender: FDA-Public Use
  Company Number: IT-MERCK-0910ITA00006

PATIENT
  Age: 39 Year
  Sex: Female

DRUGS (3)
  1. SINGULAIR [Suspect]
     Indication: ASTHMA
     Route: 065
  2. METHOTREXATE [Concomitant]
     Indication: MULTIPLE MYELOMA
     Route: 065
     Dates: start: 20060101
  3. BUDESONIDE [Concomitant]
     Indication: ASTHMA

REACTIONS (3)
  - ASTHMA [None]
  - DRUG INEFFECTIVE [None]
  - RESPIRATORY DISORDER [None]
